FAERS Safety Report 12682053 (Version 1)
Quarter: 2016Q3

REPORT INFORMATION
  Report Type: Report from Study
  Country: DE (occurrence: DE)
  Receive Date: 20160824
  Receipt Date: 20160824
  Transmission Date: 20161109
  Serious: Yes (Death)
  Sender: FDA-Public Use
  Company Number: DE-ABBVIE-16P-062-1707328-00

PATIENT
  Sex: Female

DRUGS (1)
  1. DUODOPA [Suspect]
     Active Substance: CARBIDOPA\LEVODOPA
     Indication: PARKINSON^S DISEASE
     Dosage: MD 4.0ML, CRD 2.9ML/H, CRN 2.9ML/H, ED 1.1ML
     Route: 050
     Dates: end: 20160819

REACTIONS (1)
  - Multiple organ dysfunction syndrome [Fatal]
